FAERS Safety Report 18069355 (Version 2)
Quarter: 2022Q4

REPORT INFORMATION
  Report Type: Spontaneous
  Country: FR (occurrence: FR)
  Receive Date: 20200725
  Receipt Date: 20221103
  Transmission Date: 20230112
  Serious: Yes (Other)
  Sender: FDA-Public Use
  Company Number: FR-NOVARTISPH-NVSC2020FR203887

PATIENT
  Age: 71 Year
  Sex: Male

DRUGS (3)
  1. PREDNISONE [Suspect]
     Active Substance: PREDNISONE
     Indication: Plasma cell myeloma
     Dosage: 32.8 MG, QW (5 WEEKS PER CYCLE)
     Route: 065
     Dates: end: 20180302
  2. MELPHALAN [Suspect]
     Active Substance: MELPHALAN
     Indication: Plasma cell myeloma
     Dosage: 80 MG, QW (5 WEEKS PER CYCLE)
     Route: 065
     Dates: end: 20180302
  3. VELCADE [Suspect]
     Active Substance: BORTEZOMIB
     Indication: Plasma cell myeloma
     Dosage: 5 MG, QW (5 WEEKS PER CYCLE)
     Route: 065
     Dates: end: 20180302

REACTIONS (1)
  - Haematotoxicity [Unknown]
